FAERS Safety Report 4591017-5 (Version None)
Quarter: 2005Q1

REPORT INFORMATION
  Report Type: 
  Country: None (occurrence: None)
  Receive Date: 20050222
  Receipt Date: 20050222
  Transmission Date: 20050727
  Serious: Yes (Hospitalization)
  Sender: FDA-Public Use
  Company Number: None

PATIENT
  Age: 44 Year
  Sex: Female
  Weight: 56.3 kg

DRUGS (1)
  1. SULFASALAZINE [Suspect]
     Indication: RHEUMATOID ARTHRITIS
     Dosage: ORAL
     Route: 048

REACTIONS (10)
  - CHILLS [None]
  - CHROMATURIA [None]
  - FATIGUE [None]
  - HEART RATE INCREASED [None]
  - HEPATITIS [None]
  - JAUNDICE [None]
  - PANCYTOPENIA [None]
  - PRURITUS [None]
  - PYREXIA [None]
  - RASH [None]
